FAERS Safety Report 4691072-8 (Version None)
Quarter: 2005Q2

REPORT INFORMATION
  Report Type: 
  Country: None (occurrence: None)
  Receive Date: 20050615
  Receipt Date: 20040123
  Transmission Date: 20051028
  Serious: Yes (Hospitalization, Disabling, Other)
  Sender: FDA-Public Use
  Company Number: 200411110GDDC

PATIENT
  Sex: Male

DRUGS (31)
  1. CLEXANE [Suspect]
     Route: 058
     Dates: start: 20030916, end: 20031003
  2. ASPIRIN [Suspect]
     Route: 048
     Dates: start: 20030916, end: 20031003
  3. ADENOSINE [Concomitant]
  4. METOPROLOL [Concomitant]
  5. KLOREF [Concomitant]
  6. TOLTERODINE [Concomitant]
  7. BENZYL PENICILLIN [Concomitant]
  8. FLUCLOXACILLIN [Concomitant]
  9. AMIODARONE [Concomitant]
  10. CLINDAMYCIN [Concomitant]
  11. PARACETAMOL [Concomitant]
  12. TEMAZEPAM [Concomitant]
  13. NITRAZEPAM [Concomitant]
  14. UNKNOWN DRUG [Concomitant]
  15. CYCLIZINE [Concomitant]
  16. TRAMADOL [Concomitant]
  17. MAXOLON [Concomitant]
  18. ZOLPIDEM [Concomitant]
  19. GAVISCON [Concomitant]
  20. TRIMETHOPRIM [Concomitant]
  21. CEFUROXIME [Concomitant]
  22. METRONIDAZOLE [Concomitant]
  23. TPN [Concomitant]
  24. AUGMENTIN '125' [Concomitant]
  25. CEFTAZIDIME [Concomitant]
  26. FRUMIL [Concomitant]
  27. SALBUTAMOL [Concomitant]
  28. MEROPENEM [Concomitant]
  29. LANSOPRAZOLE [Concomitant]
  30. DOTHIEPIN HYDROCHLORIDE [Concomitant]
  31. GELOFUSINE [Concomitant]

REACTIONS (10)
  - ANOREXIA [None]
  - BACK PAIN [None]
  - DYSARTHRIA [None]
  - DYSPHAGIA [None]
  - DYSPNOEA [None]
  - HAEMATURIA [None]
  - SOMNOLENCE [None]
  - TACHYCARDIA [None]
  - URINARY RETENTION [None]
  - URINARY TRACT INFECTION [None]
